FAERS Safety Report 25691745 (Version 1)
Quarter: 2025Q3

REPORT INFORMATION
  Report Type: Spontaneous
  Country: IN (occurrence: IN)
  Receive Date: 20250818
  Receipt Date: 20250818
  Transmission Date: 20251021
  Serious: Yes (Hospitalization, Other)
  Sender: DAITO PHARMACEUTICALS
  Company Number: IN-Daito Pharmaceutical Co., Ltd.-2182733

PATIENT
  Age: 59 Year
  Sex: Female

DRUGS (1)
  1. METHOTREXATE SODIUM [Suspect]
     Active Substance: METHOTREXATE SODIUM
     Indication: Rheumatoid arthritis

REACTIONS (8)
  - Mucocutaneous ulceration [Unknown]
  - Asthenia [Unknown]
  - Overdose [Unknown]
  - Intentional product misuse [Unknown]
  - Toxicity to various agents [Unknown]
  - Diarrhoea [Unknown]
  - Pancytopenia [Unknown]
  - Febrile neutropenia [Unknown]
